FAERS Safety Report 12249165 (Version 1)
Quarter: 2016Q2

REPORT INFORMATION
  Report Type: Spontaneous
  Country: FR (occurrence: FR)
  Receive Date: 20160408
  Receipt Date: 20160408
  Transmission Date: 20160815
  Serious: Yes (Hospitalization)
  Sender: FDA-Public Use
  Company Number: FR-PFIZER INC-2016195431

PATIENT
  Age: 27 Year
  Sex: Male

DRUGS (5)
  1. AMLOR [Suspect]
     Active Substance: AMLODIPINE BESYLATE
     Indication: SUICIDE ATTEMPT
     Dosage: UNK, SINGLE
     Route: 048
     Dates: start: 20160121, end: 20160121
  2. XARELTO [Suspect]
     Active Substance: RIVAROXABAN
     Dosage: UNK, SINGLE
     Route: 048
     Dates: start: 20160121, end: 20160121
  3. PYOSTACINE [Suspect]
     Active Substance: PRISTINAMYCIN
     Dosage: UNK, SINGLE
     Route: 048
     Dates: start: 20160121, end: 20160121
  4. NALTREXONE HYDROCHLORIDE. [Suspect]
     Active Substance: NALTREXONE HYDROCHLORIDE
     Dosage: UNK, SINGLE
     Route: 048
     Dates: start: 20160121, end: 20160121
  5. LOXAPAC /00401801/ [Suspect]
     Active Substance: LOXAPINE SUCCINATE
     Dosage: UNK
     Route: 048
     Dates: start: 20160121, end: 20160121

REACTIONS (3)
  - Suicide attempt [Unknown]
  - Sedation [Recovered/Resolved]
  - Toxicity to various agents [Recovered/Resolved]

NARRATIVE: CASE EVENT DATE: 20160121
